FAERS Safety Report 4428917-2 (Version None)
Quarter: 2004Q3

REPORT INFORMATION
  Report Type: 
  Country: None (occurrence: None)
  Receive Date: 20040816
  Receipt Date: 20040803
  Transmission Date: 20050211
  Serious: Yes (Other)
  Sender: FDA-Public Use
  Company Number: 2004052501

PATIENT
  Age: 46 Year
  Sex: Female

DRUGS (1)
  1. ZOLOFT [Suspect]
     Indication: DEPRESSION
     Dosage: 100 MG (100 MG, 1 IN 1 D), ORAL/2.5 YEARS AGO
     Route: 048

REACTIONS (8)
  - ABNORMAL BEHAVIOUR [None]
  - BRAIN OEDEMA [None]
  - CONCUSSION [None]
  - CONDITION AGGRAVATED [None]
  - CRYING [None]
  - DEPRESSION [None]
  - FEELING DRUNK [None]
  - ROAD TRAFFIC ACCIDENT [None]
